FAERS Safety Report 25350653 (Version 2)
Quarter: 2025Q2

REPORT INFORMATION
  Report Type: Report from Study
  Country: PR (occurrence: PR)
  Receive Date: 20250523
  Receipt Date: 20250602
  Transmission Date: 20250717
  Serious: Yes (Hospitalization)
  Sender: ABBVIE
  Company Number: PR-ABBVIE-6287556

PATIENT
  Age: 53 Year
  Sex: Female
  Weight: 90.264 kg

DRUGS (3)
  1. HUMIRA [Suspect]
     Active Substance: ADALIMUMAB
     Indication: Rheumatoid arthritis
     Dosage: CITRATE FREE
     Route: 058
     Dates: start: 20250210, end: 20250428
  2. HUMIRA [Suspect]
     Active Substance: ADALIMUMAB
     Indication: Hodgkin^s disease nodular sclerosis
     Dosage: CITRATE FREE
     Route: 058
     Dates: start: 20250124, end: 20250202
  3. HUMIRA [Suspect]
     Active Substance: ADALIMUMAB
     Dosage: CITRATE FREE
     Route: 058
     Dates: start: 20220330, end: 202412

REACTIONS (6)
  - Bronchitis [Recovered/Resolved]
  - Malaise [Recovered/Resolved]
  - Pharyngitis [Recovered/Resolved]
  - Asthma [Not Recovered/Not Resolved]
  - Pain [Recovered/Resolved]
  - Urinary tract infection [Recovered/Resolved]

NARRATIVE: CASE EVENT DATE: 20240101
